FAERS Safety Report 11869644 (Version 2)
Quarter: 2016Q1

REPORT INFORMATION
  Report Type: Report from Study
  Country: US (occurrence: US)
  Receive Date: 20151228
  Receipt Date: 20160108
  Transmission Date: 20160526
  Serious: Yes (Hospitalization, Other)
  Sender: FDA-Public Use
  Company Number: US-AMGEN-USASL2015136939

PATIENT
  Age: 67 Year
  Sex: Male

DRUGS (1)
  1. ENBREL [Suspect]
     Active Substance: ETANERCEPT
     Indication: RHEUMATOID ARTHRITIS
     Dosage: 50 MG, QWK
     Route: 065
     Dates: start: 20140829

REACTIONS (7)
  - Pain in extremity [Unknown]
  - Prostatomegaly [Unknown]
  - Urinary tract infection [Unknown]
  - Sepsis [Unknown]
  - Hospitalisation [Unknown]
  - Malaise [Unknown]
  - Decreased appetite [Unknown]

NARRATIVE: CASE EVENT DATE: 2015
